FAERS Safety Report 16672517 (Version 4)
Quarter: 2022Q2

REPORT INFORMATION
  Report Type: Spontaneous
  Country: GB (occurrence: GB)
  Receive Date: 20190806
  Receipt Date: 20220607
  Transmission Date: 20220721
  Serious: Yes (Death)
  Sender: FDA-Public Use
  Company Number: GB-PFIZER INC-2019099351

PATIENT
  Age: 27 Year
  Sex: Male

DRUGS (6)
  1. LEUCOVORIN CALCIUM [Suspect]
     Active Substance: LEUCOVORIN CALCIUM
     Indication: Epstein-Barr virus associated lymphoproliferative disorder
     Dosage: UNK
  2. LEUCOVORIN CALCIUM [Suspect]
     Active Substance: LEUCOVORIN CALCIUM
     Indication: Monoclonal B-cell lymphocytosis
  3. ACYCLOVIR [Suspect]
     Active Substance: ACYCLOVIR
     Indication: Epstein-Barr virus associated lymphoproliferative disorder
     Dosage: 37.5 MILLIGRAM/KILOGRAM, QD, (12.5 MG/KG, 3X/DAY)
  4. ACYCLOVIR [Suspect]
     Active Substance: ACYCLOVIR
     Indication: Monoclonal B-cell lymphocytosis
  5. METHOTREXATE [Suspect]
     Active Substance: METHOTREXATE
     Indication: Epstein-Barr virus associated lymphoproliferative disorder
     Dosage: UNK,3 G PER SQARE METER OF BODY-SURFACE AREA
  6. METHOTREXATE [Suspect]
     Active Substance: METHOTREXATE
     Indication: Monoclonal B-cell lymphocytosis

REACTIONS (2)
  - Hepatic failure [Fatal]
  - Renal failure [Fatal]
